FAERS Safety Report 6839660-4 (Version None)
Quarter: 2010Q3

REPORT INFORMATION
  Report Type: 
  Country: None (occurrence: None)
  Receive Date: 20100708
  Receipt Date: 20100623
  Transmission Date: 20110219
  Serious: Yes (Death)
  Sender: FDA-Public Use
  Company Number: 2010002577

PATIENT
  Age: 71 Year
  Sex: Female

DRUGS (2)
  1. TARCEVA [Suspect]
     Indication: PANCREATIC CARCINOMA
     Dosage: ORAL
     Route: 048
  2. GEMCITABINE [Suspect]
     Indication: PANCREATIC CARCINOMA

REACTIONS (7)
  - CIRCULATORY COLLAPSE [None]
  - ILEUS PARALYTIC [None]
  - LEUKOCYTOSIS [None]
  - NECROTISING COLITIS [None]
  - PERITONITIS [None]
  - SEPSIS [None]
  - SEPTIC SHOCK [None]
